FAERS Safety Report 8605167-7 (Version None)
Quarter: 2012Q3

REPORT INFORMATION
  Report Type: 
  Country: None (occurrence: None)
  Receive Date: 20120820
  Receipt Date: 20120815
  Transmission Date: 20120928
  Serious: Yes (Other)
  Sender: FDA-Public Use
  Company Number: US-PFIZER INC-2012163108

PATIENT
  Age: 52 Year
  Sex: Female

DRUGS (2)
  1. GEODON [Suspect]
     Dosage: 80 MG 2 EA AT BEDTIME
     Route: 048
     Dates: start: 20120621
  2. VITAMIN E [Concomitant]
     Dosage: 400 IU, 2X/DAY
     Route: 048
     Dates: start: 20120621

REACTIONS (4)
  - BODY DYSMORPHIC DISORDER [None]
  - BIPOLAR I DISORDER [None]
  - HYPOCHONDRIASIS [None]
  - PSYCHOTIC BEHAVIOUR [None]
